FAERS Safety Report 8473150-0 (Version None)
Quarter: 2012Q2

REPORT INFORMATION
  Report Type: 
  Country: None (occurrence: None)
  Receive Date: 20120627
  Receipt Date: 20120622
  Transmission Date: 20120825
  Serious: Yes (Other)
  Sender: FDA-Public Use
  Company Number: AU-PFIZER INC-2012135372

PATIENT
  Sex: Female

DRUGS (6)
  1. EFFEXOR XR [Suspect]
     Indication: DEPRESSION
     Dosage: 75 MG, UNK
     Route: 048
  2. TAMBOCOR [Interacting]
     Indication: ATRIAL FIBRILLATION
     Dosage: 50 MG, 2X/DAY
     Route: 048
  3. ATACAND [Concomitant]
     Indication: BLOOD PRESSURE
     Dosage: 16 MG, 2X/DAY
     Route: 048
  4. TAZAC [Concomitant]
     Indication: PEPTIC ULCER
     Dosage: 300 MG, 1X/DAY, NIGHT
     Route: 048
  5. PANADOL OSTEO [Concomitant]
     Indication: ARTHRITIS
     Dosage: 665 MG, 2X/DAY
     Route: 048
  6. METOPROLOL TARTRATE [Concomitant]
     Indication: BLOOD PRESSURE
     Dosage: 100 MG, 2X/DAY
     Route: 048

REACTIONS (2)
  - ELECTROCARDIOGRAM QT PROLONGED [None]
  - DRUG INTERACTION [None]
